FAERS Safety Report 10160080 (Version 1)
Quarter: 2014Q2

REPORT INFORMATION
  Report Type: Spontaneous
  Country: US (occurrence: US)
  Receive Date: 20140508
  Receipt Date: 20140508
  Transmission Date: 20141212
  Serious: No
  Sender: FDA-Public Use
  Company Number: US-GLAXOSMITHKLINE-A1063346A

PATIENT
  Age: 67 Year
  Sex: Female

DRUGS (1)
  1. TYKERB [Suspect]
     Indication: BREAST CANCER METASTATIC
     Dosage: 6TAB PER DAY
     Route: 048
     Dates: start: 201205, end: 20140302

REACTIONS (1)
  - Disease progression [Not Recovered/Not Resolved]
